FAERS Safety Report 10270021 (Version 2)
Quarter: 2014Q3

REPORT INFORMATION
  Report Type: Spontaneous
  Country: US (occurrence: None)
  Receive Date: 20140626
  Receipt Date: 20140708
  Transmission Date: 20150326
  Serious: Yes (Death, Hospitalization)
  Sender: FDA-Public Use
  Company Number: US-001071

PATIENT
  Age: 61 Year
  Sex: Female

DRUGS (1)
  1. GATTEX [Suspect]
     Active Substance: TEDUGLUTIDE\WATER
     Indication: SHORT-BOWEL SYNDROME
     Dosage: (FREQU:  DAILY, SUBCUTANEOUS)?
     Route: 058
     Dates: start: 20140415

REACTIONS (2)
  - Starvation [None]
  - Death [None]

NARRATIVE: CASE EVENT DATE: 20140522
